FAERS Safety Report 10007000 (Version 1)
Quarter: 2014Q1

REPORT INFORMATION
  Report Type: Spontaneous
  Country: US (occurrence: US)
  Receive Date: 20140313
  Receipt Date: 20140313
  Transmission Date: 20141002
  Serious: No
  Sender: FDA-Public Use
  Company Number: US-GILEAD-2013-0068336

PATIENT
  Sex: Female

DRUGS (5)
  1. LETAIRIS [Suspect]
     Indication: PULMONARY ARTERIAL HYPERTENSION
     Route: 048
  2. NEXIUM                             /01479302/ [Concomitant]
  3. WARFARIN [Concomitant]
  4. COREG [Concomitant]
  5. FUROSEMIDE [Concomitant]

REACTIONS (1)
  - Hypotension [Unknown]
